FAERS Safety Report 9661087 (Version 1)
Quarter: 2013Q4

REPORT INFORMATION
  Report Type: Spontaneous
  Country: TT (occurrence: TT)
  Receive Date: 20131031
  Receipt Date: 20131031
  Transmission Date: 20140711
  Serious: Yes (Life-Threatening)
  Sender: FDA-Public Use
  Company Number: TT-ABBVIE-13P-159-1164499-00

PATIENT
  Age: 2 Month
  Sex: Female
  Weight: 5 kg

DRUGS (4)
  1. ULTANE [Suspect]
     Indication: ANAESTHESIA
     Route: 055
     Dates: start: 20131025, end: 20131025
  2. FENTANYL [Concomitant]
     Indication: ANAESTHESIA
     Dates: start: 20131025, end: 20131025
  3. NIMBEX [Concomitant]
     Indication: ANAESTHESIA
     Dates: start: 20131025, end: 20131025
  4. MARCAINE [Concomitant]
     Indication: LOCAL ANAESTHESIA
     Dates: start: 20131025, end: 20131025

REACTIONS (2)
  - Respiratory arrest [Recovering/Resolving]
  - Anaesthetic complication [Recovered/Resolved]
